FAERS Safety Report 5289052-7 (Version None)
Quarter: 2007Q2

REPORT INFORMATION
  Report Type: 
  Country: None (occurrence: None)
  Receive Date: 20070405
  Receipt Date: 20070328
  Transmission Date: 20071010
  Serious: Yes (Death)
  Sender: FDA-Public Use
  Company Number: JP-PFIZER INC-2007026189

PATIENT
  Age: 61 Year
  Sex: Male

DRUGS (3)
  1. IDAMYCIN SOLUTION, STERILE [Suspect]
     Indication: ACUTE MYELOID LEUKAEMIA
  2. CYTARABINE [Suspect]
  3. MITOXANTRONE [Suspect]

REACTIONS (2)
  - JAUNDICE [None]
  - LIVER DISORDER [None]
